FAERS Safety Report 21614677 (Version 1)
Quarter: 2022Q4

REPORT INFORMATION
  Report Type: Spontaneous
  Country: DK (occurrence: DK)
  Receive Date: 20221118
  Receipt Date: 20221118
  Transmission Date: 20230113
  Serious: Yes (Other)
  Sender: FDA-Public Use
  Company Number: None

PATIENT
  Age: 34 Year
  Sex: Female

DRUGS (3)
  1. TETRACYCLINE HYDROCHLORIDE [Suspect]
     Active Substance: TETRACYCLINE HYDROCHLORIDE
     Indication: Helicobacter infection
     Dosage: STRENGTH: 250 MG. THE PATIENT ONLY TOOK TWO TABLETS, UNIT DOSE : 750 MG, FREQUENCY TIME : 1 DAYS, TH
     Route: 065
     Dates: start: 20220103, end: 20220103
  2. PANTOPRAZOLE [Concomitant]
     Active Substance: PANTOPRAZOLE
     Indication: Helicobacter infection
     Dosage: UNIT DOSE : 40 MG, FREQUENCY TIME : 1 DAYS, DURATION : 14 DAYS
     Route: 065
     Dates: start: 20220103
  3. METRONIDAZOLE [Concomitant]
     Active Substance: METRONIDAZOLE
     Indication: Helicobacter infection
     Dosage: UNIT DOSE : 1500 MG, FREQUENCY TIME : 1 DAYS, DURATION : 14 DAYS
     Route: 065
     Dates: start: 20220103

REACTIONS (4)
  - Visual impairment [Recovered/Resolved]
  - Dizziness [Recovered/Resolved]
  - Headache [Recovered/Resolved]
  - Intracranial pressure increased [Recovered/Resolved]

NARRATIVE: CASE EVENT DATE: 20220103
